FAERS Safety Report 14784728 (Version 1)
Quarter: 2018Q2

REPORT INFORMATION
  Report Type: Spontaneous
  Country: GB (occurrence: GB)
  Receive Date: 20180420
  Receipt Date: 20180420
  Transmission Date: 20180711
  Serious: Yes (Other)
  Sender: FDA-Public Use
  Company Number: GB-ELI_LILLY_AND_COMPANY-GB201804004863

PATIENT
  Sex: Male

DRUGS (1)
  1. HUMALOG [Suspect]
     Active Substance: INSULIN LISPRO
     Indication: DIABETES MELLITUS
     Dosage: UNK, UNKNOWN
     Route: 065

REACTIONS (8)
  - Burning sensation [Unknown]
  - Drug hypersensitivity [Unknown]
  - Pain [Unknown]
  - Blood glucose abnormal [Unknown]
  - Weight decreased [Unknown]
  - Feeding disorder [Unknown]
  - Malaise [Unknown]
  - Diarrhoea [Unknown]
